FAERS Safety Report 6300211-4 (Version None)
Quarter: 2009Q3

REPORT INFORMATION
  Report Type: 
  Country: None (occurrence: None)
  Receive Date: 20090803
  Receipt Date: 20090724
  Transmission Date: 20100115
  Serious: Yes (Death, Hospitalization, Other)
  Sender: FDA-Public Use
  Company Number: 84491

PATIENT
  Age: 3 Year
  Sex: Female

DRUGS (1)
  1. DAUNORUBICIN HCL [Suspect]
     Indication: LEUKAEMIA

REACTIONS (9)
  - ASPERGILLOSIS [None]
  - BRAIN STEM INFARCTION [None]
  - CENTRAL NERVOUS SYSTEM LESION [None]
  - CEREBRAL HAEMORRHAGE [None]
  - FEBRILE NEUTROPENIA [None]
  - HYPERGLYCAEMIA [None]
  - MENINGISM [None]
  - RUPTURED CEREBRAL ANEURYSM [None]
  - SINUSITIS [None]
